FAERS Safety Report 12790211 (Version 1)
Quarter: 2016Q3

REPORT INFORMATION
  Report Type: Other
  Country: US (occurrence: US)
  Receive Date: 20160928
  Receipt Date: 20160928
  Transmission Date: 20161109
  Serious: Yes (Life-Threatening, Hospitalization, Disabling)
  Sender: FDA-Public Use
  Company Number: US-PHARMACEUTICAL ASSOCIATES, INC.-1057826

PATIENT
  Age: 5 Year
  Sex: Female
  Weight: 20.5 kg

DRUGS (10)
  1. ACETAMINOPHEN ORAL SOLUTION [Suspect]
     Active Substance: ACETAMINOPHEN
     Indication: PAIN
     Route: 048
     Dates: start: 201410, end: 201410
  2. CEPHALEXIN. [Concomitant]
     Active Substance: CEPHALEXIN
  3. ACETAMINOPHEN ORAL SOLUTION [Suspect]
     Active Substance: ACETAMINOPHEN
     Indication: PYREXIA
     Route: 048
     Dates: start: 201410, end: 201410
  4. ACETAMINOPHEN ORAL SOLUTION [Suspect]
     Active Substance: ACETAMINOPHEN
     Indication: OROPHARYNGEAL PAIN
     Route: 048
     Dates: start: 201410, end: 201410
  5. MULTIPLE OTHER GENERIC ACETAMINOPHEN PRODUCTS [Concomitant]
  6. ACETAMINOPHEN CHILDREN^S [Suspect]
     Active Substance: ACETAMINOPHEN
     Dates: start: 201410, end: 201410
  7. CLINDAMYCIN [Concomitant]
     Active Substance: CLINDAMYCIN\CLINDAMYCIN PHOSPHATE
  8. TYLENOL [Concomitant]
     Active Substance: ACETAMINOPHEN
  9. VANCOMYCIN HCL [Concomitant]
     Active Substance: VANCOMYCIN HYDROCHLORIDE
  10. IBUPROFEN. [Concomitant]
     Active Substance: IBUPROFEN

REACTIONS (2)
  - Stevens-Johnson syndrome [Recovered/Resolved]
  - Toxic epidermal necrolysis [Recovered/Resolved]

NARRATIVE: CASE EVENT DATE: 201410
